FAERS Safety Report 9303292 (Version 2)
Quarter: 2013Q2

REPORT INFORMATION
  Report Type: Spontaneous
  Country: US (occurrence: None)
  Receive Date: 20130517
  Receipt Date: 20130524
  Transmission Date: 20140414
  Serious: Yes (Other)
  Sender: FDA-Public Use
  Company Number: 2013US0177

PATIENT
  Sex: Male

DRUGS (2)
  1. KINERET [Suspect]
     Indication: OSTEOARTHROPATHY
     Dosage: 100 MG, 1 IN 1 D, SC
     Route: 058
     Dates: start: 20121212
  2. KINERET [Suspect]
     Dosage: 100 MG, 1 IN 1 D, SC
     Route: 058
     Dates: start: 20121212

REACTIONS (4)
  - Spinal cord disorder [None]
  - Mass [None]
  - Arthralgia [None]
  - Arthralgia [None]
